FAERS Safety Report 8385020-7 (Version None)
Quarter: 2012Q2

REPORT INFORMATION
  Report Type: 
  Country: None (occurrence: None)
  Receive Date: 20120524
  Receipt Date: 20120515
  Transmission Date: 20120825
  Serious: Yes (Death, Hospitalization)
  Sender: FDA-Public Use
  Company Number: DE-BAXTER-2012BAX003024

PATIENT
  Sex: Male

DRUGS (3)
  1. PHYSIOSOL IN PLASTIC CONTAINER [Suspect]
     Route: 033
     Dates: start: 20120329, end: 20120411
  2. EXTRANEAL [Suspect]
     Route: 033
     Dates: start: 20120326, end: 20120411
  3. DIANEAL PD4 GLUCOSE 1,36 % W/V [Suspect]
     Route: 033
     Dates: start: 20120329, end: 20120411

REACTIONS (7)
  - INFECTION [None]
  - SEPSIS [None]
  - ARTERIAL OCCLUSIVE DISEASE [None]
  - NECROSIS [None]
  - PNEUMONIA [None]
  - GANGRENE [None]
  - ASTHENIA [None]
